FAERS Safety Report 7191814-6 (Version None)
Quarter: 2010Q4

REPORT INFORMATION
  Report Type: 
  Country: None (occurrence: None)
  Receive Date: 20101223
  Receipt Date: 20101209
  Transmission Date: 20110411
  Serious: Yes (Disabling)
  Sender: FDA-Public Use
  Company Number: PHFR2010GB05834

PATIENT
  Sex: Male

DRUGS (2)
  1. ZOMETA [Suspect]
     Indication: METASTASES TO BONE
     Dosage: 4 MG
     Route: 042
     Dates: start: 20060901, end: 20060901
  2. SUNITINIB MALATE [Concomitant]
     Indication: RENAL CELL CARCINOMA
     Dosage: 37.5
     Route: 048
     Dates: start: 20060401, end: 20080201

REACTIONS (1)
  - OSTEONECROSIS OF JAW [None]
